FAERS Safety Report 8117679-3 (Version None)
Quarter: 2012Q1

REPORT INFORMATION
  Report Type: 
  Country: None (occurrence: None)
  Receive Date: 20120203
  Receipt Date: 20120203
  Transmission Date: 20120608
  Serious: Yes (Life-Threatening, Hospitalization)
  Sender: FDA-Public Use
  Company Number: None

PATIENT
  Age: 55 Year
  Sex: Female
  Weight: 105.4 kg

DRUGS (2)
  1. TEFLARO [Suspect]
     Indication: CELLULITIS
     Dosage: CEFTAROLINE 600MG EVERY 12 HRS INTRAVENOUS
     Route: 042
     Dates: start: 20111220, end: 20120105
  2. CLINDAMYCIN [Suspect]
     Indication: CELLULITIS
     Dosage: CLINDAMYCIN 900MG EVERY 12 HRS INTRAVENOUS
     Route: 042
     Dates: start: 20111220, end: 20120105

REACTIONS (3)
  - DYSPNOEA [None]
  - NEUTROPENIA [None]
  - OEDEMA PERIPHERAL [None]
